FAERS Safety Report 16143916 (Version 1)
Quarter: 2019Q2

REPORT INFORMATION
  Report Type: Spontaneous
  Country: FR (occurrence: FR)
  Receive Date: 20190401
  Receipt Date: 20190401
  Transmission Date: 20190711
  Serious: Yes (Other)
  Sender: FDA-Public Use
  Company Number: FR-PFIZER INC-2019132405

PATIENT
  Age: 70 Year
  Sex: Male
  Weight: 62 kg

DRUGS (6)
  1. CORTANCYL [Suspect]
     Active Substance: PREDNISONE
     Indication: RENAL TRANSPLANT
     Dosage: 3 MG, 1X/DAY
     Route: 048
  2. CARDENSIEL [Suspect]
     Active Substance: BISOPROLOL FUMARATE
     Indication: HYPERTENSION
     Dosage: 10 MG, 1X/DAY
     Route: 048
  3. AMIODARONE [Suspect]
     Active Substance: AMIODARONE
     Indication: ATRIAL FIBRILLATION
     Dosage: 200 MG, UNK (5 DAYS OUT OF 7)
     Route: 048
  4. RAPAMUNE [Suspect]
     Active Substance: SIROLIMUS
     Indication: RENAL TRANSPLANT
     Dosage: 0.5 MG, 1X/DAY
     Route: 048
  5. CELLCEPT [Suspect]
     Active Substance: MYCOPHENOLATE MOFETIL\MYCOPHENOLATE MOFETIL HYDROCHLORIDE
     Indication: RENAL TRANSPLANT
     Dosage: 1000 MG, 1X/DAY
     Route: 048
  6. INEGY [Suspect]
     Active Substance: EZETIMIBE\SIMVASTATIN
     Dosage: 1 DF, 1X/DAY
     Route: 048

REACTIONS (2)
  - Pericardial effusion [Not Recovered/Not Resolved]
  - Pericarditis [Recovered/Resolved]

NARRATIVE: CASE EVENT DATE: 201710
